FAERS Safety Report 9809322 (Version 1)
Quarter: 2014Q1

REPORT INFORMATION
  Report Type: Spontaneous
  Country: US (occurrence: US)
  Receive Date: 20140110
  Receipt Date: 20140110
  Transmission Date: 20141002
  Serious: Yes (Hospitalization)
  Sender: FDA-Public Use
  Company Number: US-PERRIGO-13US013407

PATIENT
  Age: 59 Year
  Sex: Male
  Weight: 106.58 kg

DRUGS (5)
  1. ASPIRIN 325MG COATED 416 [Suspect]
     Indication: ROUTINE HEALTH MAINTENANCE
     Dosage: 325 MG, QD
     Route: 048
     Dates: start: 201208
  2. ASPIRIN 325MG COATED 416 [Suspect]
     Dosage: 325 MG, QD
     Route: 048
     Dates: start: 2003, end: 201208
  3. VITAMINS NOS [Concomitant]
     Indication: SUPPLEMENTATION THERAPY
     Dosage: UNK
     Route: 048
     Dates: start: 2003
  4. ZANTAC [Concomitant]
     Indication: DYSPEPSIA
     Dosage: UNK
     Route: 048
     Dates: start: 2003
  5. FISH OIL [Concomitant]
     Indication: SUPPLEMENTATION THERAPY
     Dosage: UNK
     Route: 048
     Dates: start: 2010

REACTIONS (9)
  - Dizziness [Recovered/Resolved]
  - Loss of consciousness [Recovered/Resolved]
  - Amphetamines positive [Unknown]
  - Vomiting [Recovered/Resolved]
  - Somnolence [Recovered/Resolved]
  - Exposure to unspecified agent [Unknown]
  - Dry mouth [Recovered/Resolved]
  - Off label use [Unknown]
  - Incorrect drug administration duration [Unknown]
